FAERS Safety Report 18336487 (Version 2)
Quarter: 2020Q4

REPORT INFORMATION
  Report Type: Spontaneous
  Country: DE (occurrence: DE)
  Receive Date: 20201001
  Receipt Date: 20201117
  Transmission Date: 20210113
  Serious: Yes (Hospitalization)
  Sender: FDA-Public Use
  Company Number: DE-TEVA-2020-DE-1832272

PATIENT
  Age: 78 Year
  Sex: Male

DRUGS (20)
  1. AMANTADIN [Suspect]
     Active Substance: AMANTADINE
     Dosage: 100 MILLIGRAM DAILY;  1-0-0-0
     Route: 048
  2. CARVEDILOL. [Concomitant]
     Active Substance: CARVEDILOL
     Dosage: 12.5 MILLIGRAM DAILY; 1-0-0-0
     Route: 048
  3. APIXABAN [Concomitant]
     Active Substance: APIXABAN
     Dosage: 5 MILLIGRAM DAILY; 1-0-1-0
     Route: 048
  4. XIPAMID [Concomitant]
     Active Substance: XIPAMIDE
     Dosage: 20 MILLIGRAM DAILY; 1-0-0-0
     Route: 048
  5. METAMIZOL [Concomitant]
     Active Substance: METAMIZOLE SODIUM
     Dosage: 20 GTT, 4X, DROP
     Route: 048
  6. TRAMADOL. [Concomitant]
     Active Substance: TRAMADOL
     Dosage: 50 MG
     Route: 048
  7. ALLOPURINOL. [Concomitant]
     Active Substance: ALLOPURINOL
     Dosage: .5 DOSAGE FORMS DAILY; 300 MG, 0.5-0-0-0,
     Route: 048
  8. TORASEMID [Concomitant]
     Active Substance: TORSEMIDE
     Dosage: 10 MILLIGRAM DAILY; 1-0-0-0,
     Route: 048
  9. BENSERAZID/LEVODOPA [Concomitant]
     Active Substance: BENSERAZIDE\LEVODOPA
     Dosage: 3 DOSAGE FORMS DAILY; 25|100 MG, 1-1-1-0
     Route: 048
  10. FOLSAURE [Concomitant]
     Active Substance: FOLIC ACID
     Dosage: 5 MG / WEEK, 2X,
     Route: 048
  11. INSULIN HUMAN [Concomitant]
     Active Substance: INSULIN HUMAN
     Dosage: ACCORDING TO THE SCHEME, AMPOULES
     Route: 058
  12. CYANOCOBALAMIN (VITAMIN B12) [Concomitant]
     Dosage: 1 DOSAGE FORMS DAILY; NK MG, 1-0-0-0
     Route: 048
  13. COLECALCIFEROL (VITAMIN D) [Concomitant]
     Dosage: 20,000 IU / WEEK, 1X, CAPSULES
     Route: 048
  14. ROPINIROL [Suspect]
     Active Substance: ROPINIROLE
     Dosage: 8 MILLIGRAM DAILY; 1-0-0-0,
     Route: 048
  15. MADOPAR LT [Concomitant]
     Active Substance: BENSERAZIDE HYDROCHLORIDE\LEVODOPA
     Dosage: 1 DOSAGE FORMS DAILY; 25|100 MG, 1-0-0-0
     Route: 048
  16. AMOXICILLIN/CLAVULANSAURE [Concomitant]
     Active Substance: AMOXICILLIN\CLAVULANATE POTASSIUM
     Dosage: 2 DOSAGE FORMS DAILY; 875|125 MG, 1-0-1-0,
     Route: 048
  17. QUETIAPIN [Concomitant]
     Active Substance: QUETIAPINE
     Dosage: 2 DOSAGE FORMS DAILY; 25 MG, 0-0-0-2
     Route: 048
  18. KALIUM [Concomitant]
     Active Substance: POTASSIUM CHLORIDE
     Dosage: 1 DOSAGE FORMS DAILY;  1-0-0-0
     Route: 048
  19. EISEN(II) [Concomitant]
     Dosage: 100 MILLIGRAM DAILY; 1-0-0-0
     Route: 048
  20. INSULIN GLARGIN [Concomitant]
     Active Substance: INSULIN GLARGINE
     Dosage: 16 IU (INTERNATIONAL UNIT) DAILY; 0-0-0-16, AMPOULES
     Route: 058

REACTIONS (6)
  - Product prescribing error [Unknown]
  - Loss of consciousness [Unknown]
  - Somnolence [Unknown]
  - General physical health deterioration [Unknown]
  - Fall [Unknown]
  - Depressed level of consciousness [Unknown]
